FAERS Safety Report 19186175 (Version 2)
Quarter: 2021Q2

REPORT INFORMATION
  Report Type: Spontaneous
  Country: SE (occurrence: SE)
  Receive Date: 20210427
  Receipt Date: 20210518
  Transmission Date: 20210717
  Serious: Yes (Other)
  Sender: FDA-Public Use
  Company Number: SE-ORGANON-O2104SWE002204

PATIENT
  Age: 35 Year
  Sex: Male
  Weight: 81 kg

DRUGS (1)
  1. DESLORATADINE. [Suspect]
     Active Substance: DESLORATADINE
     Indication: SEASONAL ALLERGY
     Dosage: UNK, OD
     Route: 048

REACTIONS (4)
  - Product use complaint [Unknown]
  - Product size issue [Unknown]
  - Foreign body in throat [Recovered/Resolved]
  - Asphyxia [Unknown]
